FAERS Safety Report 9775228 (Version 1)
Quarter: 2013Q4

REPORT INFORMATION
  Report Type: Spontaneous
  Country: US (occurrence: None)
  Receive Date: 20131219
  Receipt Date: 20131219
  Transmission Date: 20140711
  Serious: Yes (Disabling)
  Sender: FDA-Public Use
  Company Number: None

PATIENT
  Age: 36 Year
  Sex: Female
  Weight: 58.06 kg

DRUGS (2)
  1. LEVOFLOXACIN [Suspect]
     Indication: URINARY TRACT INFECTION
     Dosage: 1 PILL ONCE DAILY TAKEN BY MOUTH?
     Route: 048
     Dates: start: 20130307, end: 20130310
  2. LEVOFLOXACIN [Suspect]
     Indication: SINUSITIS
     Dosage: 1 PILL ONCE DAILY TAKEN BY MOUTH?
     Route: 048
     Dates: start: 20130307, end: 20130310

REACTIONS (6)
  - Ligament injury [None]
  - Muscle injury [None]
  - Ligament sprain [None]
  - Fibromyalgia [None]
  - Impaired healing [None]
  - Tendon injury [None]
